FAERS Safety Report 7448309-1 (Version None)
Quarter: 2011Q2

REPORT INFORMATION
  Report Type: 
  Country: None (occurrence: None)
  Receive Date: 20110429
  Receipt Date: 20110420
  Transmission Date: 20111010
  Serious: Yes (Hospitalization)
  Sender: FDA-Public Use
  Company Number: US-ASTRAZENECA-2011SE22582

PATIENT
  Age: 55 Year
  Sex: Male

DRUGS (5)
  1. TOPROL-XL [Suspect]
     Indication: VASCULAR GRAFT
     Dosage: TOPROL-XL 1/2 DOSE FOR A WEEK
     Route: 048
  2. TOPROL-XL [Suspect]
     Route: 048
     Dates: start: 20040101
  3. ASPIRIN [Concomitant]
  4. PREVACID [Concomitant]
  5. VYTORIN [Concomitant]

REACTIONS (8)
  - HEART RATE DECREASED [None]
  - GASTRITIS [None]
  - GASTROOESOPHAGEAL REFLUX DISEASE [None]
  - DEHYDRATION [None]
  - HEADACHE [None]
  - INCORRECT DOSE ADMINISTERED [None]
  - HIATUS HERNIA [None]
  - DYSPNOEA [None]
